FAERS Safety Report 10394619 (Version 1)
Quarter: 2014Q3

REPORT INFORMATION
  Report Type: Spontaneous
  Country: IE (occurrence: IE)
  Receive Date: 20140820
  Receipt Date: 20140820
  Transmission Date: 20150326
  Serious: Yes (Death)
  Sender: FDA-Public Use
  Company Number: IE-AMGEN-IRLSP2014061969

PATIENT
  Age: 72 Year
  Sex: Male

DRUGS (9)
  1. DOXAZOSIN [Concomitant]
     Active Substance: DOXAZOSIN\DOXAZOSIN MESYLATE
     Dosage: UNK
  2. ATORVASTATIN [Concomitant]
     Active Substance: ATORVASTATIN
     Dosage: UNK
  3. AMLODIPINE [Concomitant]
     Active Substance: AMLODIPINE BESYLATE
     Dosage: UNK
  4. ASPIRIN                            /00002701/ [Concomitant]
     Active Substance: ASPIRIN
     Dosage: UNK
  5. CELIPROLOL [Concomitant]
     Active Substance: CELIPROLOL
     Dosage: UNK
  6. COLGOUT [Concomitant]
     Active Substance: COLCHICINE
     Dosage: UNK
  7. ARANESP [Suspect]
     Active Substance: DARBEPOETIN ALFA
     Indication: RENAL FAILURE CHRONIC
     Dosage: 20 MUG, Q2WK
     Route: 058
     Dates: start: 20130930
  8. PREDNISOLONE. [Concomitant]
     Active Substance: PREDNISOLONE
     Dosage: UNK
  9. ONE ALPHA [Concomitant]
     Active Substance: ALFACALCIDOL
     Dosage: UNK

REACTIONS (1)
  - Death [Fatal]
